FAERS Safety Report 7934096-7 (Version None)
Quarter: 2011Q4

REPORT INFORMATION
  Report Type: 
  Country: None (occurrence: None)
  Receive Date: 20111122
  Receipt Date: 20110728
  Transmission Date: 20120403
  Serious: No
  Sender: FDA-Public Use
  Company Number: US-BAYER-2011-066331

PATIENT
  Age: 79 Year
  Sex: Male

DRUGS (5)
  1. CARDURA [Concomitant]
  2. OXYBUTYNIN [Concomitant]
  3. PSEUDOEPHEDRINE, COMBINATIONS [Concomitant]
  4. FINASTERIDE [Concomitant]
  5. LEVITRA [Suspect]
     Indication: ERECTILE DYSFUNCTION
     Dosage: 20 MG, UNK
     Route: 048
     Dates: start: 20020101, end: 20100706

REACTIONS (1)
  - DRUG INEFFECTIVE [None]
